FAERS Safety Report 18467581 (Version 3)
Quarter: 2020Q4

REPORT INFORMATION
  Report Type: Spontaneous
  Country: JP (occurrence: JP)
  Receive Date: 20201105
  Receipt Date: 20201210
  Transmission Date: 20210114
  Serious: Yes (Death)
  Sender: FDA-Public Use
  Company Number: JP-JNJFOC-20201042901

PATIENT
  Age: 82 Year
  Sex: Female
  Weight: 37.5 kg

DRUGS (7)
  1. ADCIRCA [Concomitant]
     Active Substance: TADALAFIL
     Indication: PULMONARY ARTERIAL HYPERTENSION
     Route: 048
     Dates: start: 20190222, end: 20201023
  2. FUROSEMIDE. [Concomitant]
     Active Substance: FUROSEMIDE
     Indication: PULMONARY ARTERIAL HYPERTENSION
     Route: 048
     Dates: start: 20190216, end: 20201023
  3. CILOSTAZOL. [Concomitant]
     Active Substance: CILOSTAZOL
     Indication: ARTERIOSCLEROSIS
     Route: 048
     Dates: end: 20201023
  4. OPSUMIT [Suspect]
     Active Substance: MACITENTAN
     Indication: PULMONARY ARTERIAL HYPERTENSION
     Route: 048
     Dates: start: 20201010, end: 20201023
  5. UPTRAVI [Concomitant]
     Active Substance: SELEXIPAG
     Indication: PULMONARY ARTERIAL HYPERTENSION
     Route: 048
     Dates: start: 20190612, end: 20201023
  6. SPIRONOLACTONE. [Concomitant]
     Active Substance: SPIRONOLACTONE
     Indication: PULMONARY ARTERIAL HYPERTENSION
     Route: 048
     Dates: start: 20190216, end: 20201023
  7. TAKECAB [Concomitant]
     Active Substance: VONOPRAZAN FUMARATE
     Indication: SYSTEMIC SCLERODERMA
     Route: 048
     Dates: start: 20200912, end: 20201023

REACTIONS (1)
  - Sepsis [Fatal]

NARRATIVE: CASE EVENT DATE: 20201023
